FAERS Safety Report 8249900-5 (Version None)
Quarter: 2012Q2

REPORT INFORMATION
  Report Type: 
  Country: None (occurrence: None)
  Receive Date: 20120402
  Receipt Date: 20120329
  Transmission Date: 20120825
  Serious: Yes (Death)
  Sender: FDA-Public Use
  Company Number: PHEH2012US006892

PATIENT
  Sex: Male

DRUGS (15)
  1. MULTI-VITAMINS [Concomitant]
  2. ADVAIR DISKUS 100/50 [Concomitant]
  3. LASIX [Concomitant]
     Dosage: 20 MG, UNK
  4. AFINITOR [Suspect]
     Dosage: 10 MG, UNK
  5. NEXAVAR [Suspect]
     Dosage: 200 MG, UNK
  6. OXYCODONE HCL [Concomitant]
     Dosage: 10 MG, UNK
  7. LANTUS [Concomitant]
  8. POTASSIUM [Concomitant]
  9. VOTRIENT [Suspect]
     Dosage: 04 DF, QD
  10. PRILOSEC [Concomitant]
     Dosage: 10 MG, UNK
  11. VITAMIN B-12 [Concomitant]
  12. METOPROLOL SUCCINATE [Concomitant]
     Dosage: 100 MG, UNK
  13. FENTANYL [Concomitant]
  14. AMLODIPINE [Concomitant]
     Dosage: 2.5 MG, UNK
  15. HUMALOG [Concomitant]

REACTIONS (1)
  - DEATH [None]
